FAERS Safety Report 7303404-2 (Version None)
Quarter: 2011Q1

REPORT INFORMATION
  Report Type: 
  Country: None (occurrence: None)
  Receive Date: 20110221
  Receipt Date: 20110208
  Transmission Date: 20110831
  Serious: Yes (Hospitalization, Other)
  Sender: FDA-Public Use
  Company Number: US-ELI_LILLY_AND_COMPANY-US200912006248

PATIENT
  Sex: Female

DRUGS (4)
  1. SYNTHROID [Concomitant]
     Dosage: UNK, DAILY (1/D)
     Route: 065
  2. FORTEO [Suspect]
     Dosage: 20 UG, DAILY (1/D)
  3. METOPROLOL [Concomitant]
     Dosage: UNK, DAILY (1/D)
     Route: 065
  4. FORTEO [Suspect]
     Indication: OSTEOPOROSIS
     Dosage: 20 UG, DAILY (1/D)
     Dates: start: 20090401

REACTIONS (6)
  - SPINAL DISORDER [None]
  - HYDROCEPHALUS [None]
  - NECK PAIN [None]
  - CEREBROVASCULAR ACCIDENT [None]
  - FEELING ABNORMAL [None]
  - FALL [None]
